FAERS Safety Report 9678641 (Version 3)
Quarter: 2013Q4

REPORT INFORMATION
  Report Type: Spontaneous
  Country: US (occurrence: US)
  Receive Date: 20131108
  Receipt Date: 20131120
  Transmission Date: 20140711
  Serious: Yes (Hospitalization)
  Sender: FDA-Public Use
  Company Number: US-PFIZER INC-2013318328

PATIENT
  Age: 79 Year
  Sex: Female

DRUGS (5)
  1. AMIODARONE HCL [Suspect]
     Indication: ATRIAL FLUTTER
     Dosage: 400 MG, TWICE DAILY
     Route: 048
  2. AMIODARONE HCL [Suspect]
     Indication: VENTRICULAR TACHYCARDIA
     Dosage: 200 MG, TWICE DAILY
     Route: 048
  3. AMIODARONE HCL [Suspect]
     Dosage: 400 MG, TWICE A DAY
     Route: 048
  4. AMIODARONE [Suspect]
     Indication: ATRIAL FLUTTER
     Dosage: UNK
     Route: 042
  5. AMIODARONE [Suspect]
     Indication: VENTRICULAR TACHYCARDIA

REACTIONS (3)
  - Neurotoxicity [Recovering/Resolving]
  - Ataxia [Recovering/Resolving]
  - Paraesthesia [Unknown]
